FAERS Safety Report 7333311-0 (Version None)
Quarter: 2011Q1

REPORT INFORMATION
  Report Type: 
  Country: None (occurrence: None)
  Receive Date: 20110222
  Receipt Date: 20110208
  Transmission Date: 20110831
  Serious: Yes (Other)
  Sender: FDA-Public Use
  Company Number: 2011AP000238

PATIENT
  Age: 68 Year
  Sex: Female

DRUGS (4)
  1. AMLODIPINE [Concomitant]
  2. RAMIPRIL [Concomitant]
  3. ALENDRONATE SODIUM [Suspect]
     Indication: OSTEOPOROSIS PROPHYLAXIS
     Dosage: 70 MG
     Route: 048
  4. RANITIDINE [Concomitant]

REACTIONS (2)
  - RENAL DISORDER [None]
  - HYPERTENSION [None]
